FAERS Safety Report 8376644-1 (Version None)
Quarter: 2012Q2

REPORT INFORMATION
  Report Type: 
  Country: None (occurrence: None)
  Receive Date: 20120522
  Receipt Date: 20120510
  Transmission Date: 20120825
  Serious: No
  Sender: FDA-Public Use
  Company Number: US-ASTRAZENECA-2012SE30347

PATIENT
  Sex: Female

DRUGS (3)
  1. OMEPRAZOLE [Suspect]
     Route: 048
  2. NEXIUM [Suspect]
     Route: 048
  3. COUMADIN [Concomitant]

REACTIONS (8)
  - THROAT IRRITATION [None]
  - SENSATION OF FOREIGN BODY [None]
  - HYPERCHLORHYDRIA [None]
  - MALAISE [None]
  - DYSPHAGIA [None]
  - DYSPHONIA [None]
  - DRUG INEFFECTIVE [None]
  - INTENTIONAL DRUG MISUSE [None]
